FAERS Safety Report 10080619 (Version 1)
Quarter: 2014Q2

REPORT INFORMATION
  Report Type: Spontaneous
  Country: US (occurrence: US)
  Receive Date: 20140416
  Receipt Date: 20140416
  Transmission Date: 20141212
  Serious: No
  Sender: FDA-Public Use
  Company Number: US-JNJFOC-20140404857

PATIENT
  Sex: Female
  Weight: 77.11 kg

DRUGS (2)
  1. DURAGESIC [Suspect]
     Indication: PAIN
     Route: 062
     Dates: start: 2004, end: 2007
  2. XANAX [Concomitant]
     Indication: ANXIETY
     Route: 048

REACTIONS (4)
  - Therapeutic response decreased [Recovered/Resolved]
  - Pain [Recovered/Resolved]
  - Product quality issue [Unknown]
  - Wrong technique in drug usage process [Unknown]
